FAERS Safety Report 19465602 (Version 15)
Quarter: 2024Q1

REPORT INFORMATION
  Report Type: Report from Study
  Country: CO (occurrence: CO)
  Receive Date: 20210625
  Receipt Date: 20240216
  Transmission Date: 20240409
  Serious: Yes (Other)
  Sender: FDA-Public Use
  Company Number: NVSC2021CO139979

PATIENT
  Age: 59 Year
  Sex: Female
  Weight: 72 kg

DRUGS (9)
  1. ELTROMBOPAG OLAMINE [Suspect]
     Active Substance: ELTROMBOPAG OLAMINE
     Indication: Immune thrombocytopenia
     Dosage: 50 MG, QD (2 TABLETS OF 25 MG)
     Route: 048
     Dates: start: 20210412
  2. ELTROMBOPAG OLAMINE [Suspect]
     Active Substance: ELTROMBOPAG OLAMINE
     Dosage: 50 MG, QD
     Route: 048
  3. ELTROMBOPAG OLAMINE [Suspect]
     Active Substance: ELTROMBOPAG OLAMINE
     Dosage: UNK
     Route: 048
  4. PANTOPRAZOLE [Suspect]
     Active Substance: PANTOPRAZOLE
     Indication: Gastrointestinal disorder prophylaxis
     Dosage: 50 MG, QD (APPROXIMATELY 20 DAYS AGO)
     Route: 048
  5. PANTOPRAZOLE [Suspect]
     Active Substance: PANTOPRAZOLE
     Dosage: 50 MG, QD
     Route: 048
  6. PREDNISOLONE [Suspect]
     Active Substance: PREDNISOLONE
     Indication: Product used for unknown indication
     Dosage: UNK
     Route: 065
  7. AZATHIOPRINE [Suspect]
     Active Substance: AZATHIOPRINE
     Indication: Product used for unknown indication
     Dosage: 50 MG
     Route: 065
  8. EUTHYROX [Concomitant]
     Active Substance: LEVOTHYROXINE SODIUM
     Indication: Hypothyroidism
     Dosage: 88 UG, QD  (STARTED 4 YEARS AGO)
     Route: 048
  9. EUTHYROX [Concomitant]
     Active Substance: LEVOTHYROXINE SODIUM
     Dosage: 88 MG
     Route: 065

REACTIONS (15)
  - Choking [Recovered/Resolved]
  - Syncope [Unknown]
  - Asphyxia [Recovered/Resolved]
  - Weight increased [Recovered/Resolved]
  - Stress [Recovered/Resolved]
  - Rash macular [Recovered/Resolved]
  - Platelet count decreased [Unknown]
  - Anxiety [Unknown]
  - Tachycardia [Unknown]
  - Nervousness [Unknown]
  - Abdominal pain upper [Unknown]
  - Dizziness [Unknown]
  - Malaise [Unknown]
  - Product distribution issue [Unknown]
  - Product dose omission issue [Unknown]

NARRATIVE: CASE EVENT DATE: 20210707
